FAERS Safety Report 6577686-9 (Version None)
Quarter: 2010Q1

REPORT INFORMATION
  Report Type: 
  Country: None (occurrence: None)
  Receive Date: 20100211
  Receipt Date: 20100204
  Transmission Date: 20100710
  Serious: Yes (Death, Hospitalization)
  Sender: FDA-Public Use
  Company Number: PHEH2010US01425

PATIENT
  Sex: Female
  Weight: 54.5 kg

DRUGS (4)
  1. GLEEVEC [Suspect]
     Indication: ACUTE LYMPHOCYTIC LEUKAEMIA
     Dosage: 200 MG, QD
     Route: 048
     Dates: start: 20070719, end: 20080901
  2. GLEEVEC [Suspect]
     Dosage: 400 MG ALT WITH 800 MG,
     Route: 048
     Dates: start: 20100111
  3. SPRYCEL [Suspect]
     Indication: ACUTE LYMPHOCYTIC LEUKAEMIA
     Dosage: 70 MG, BID
     Route: 048
     Dates: start: 20090401
  4. SPRYCEL [Suspect]
     Dosage: 70 MG, QD
     Dates: start: 20091201, end: 20091221

REACTIONS (6)
  - ATELECTASIS [None]
  - CARDIAC FAILURE CONGESTIVE [None]
  - DYSPNOEA [None]
  - PLEURAL EFFUSION [None]
  - RASH [None]
  - RESPIRATORY FAILURE [None]
